FAERS Safety Report 5821562-3 (Version None)
Quarter: 2008Q3

REPORT INFORMATION
  Report Type: 
  Country: None (occurrence: None)
  Receive Date: 20080724
  Receipt Date: 20080716
  Transmission Date: 20090109
  Serious: Yes (Hospitalization, Other)
  Sender: FDA-Public Use
  Company Number: PHHY2008FR08760

PATIENT
  Sex: Female

DRUGS (5)
  1. FEMARA [Suspect]
     Indication: BREAST CANCER
     Dosage: 2.5 MG, UNK
     Route: 048
     Dates: end: 20080612
  2. VITAMIN B-12 [Concomitant]
  3. FLUDEX [Concomitant]
  4. FIXICAL VITAMINE D3 [Concomitant]
  5. STRONTIUM RANELATE [Suspect]

REACTIONS (6)
  - ATAXIA [None]
  - DENERVATION ATROPHY [None]
  - ELECTROMYOGRAM ABNORMAL [None]
  - GAIT DISTURBANCE [None]
  - POLYNEUROPATHY [None]
  - POSITIVE ROMBERGISM [None]
